FAERS Safety Report 4600477-2 (Version None)
Quarter: 2005Q1

REPORT INFORMATION
  Report Type: 
  Country: None (occurrence: None)
  Receive Date: 20050304
  Receipt Date: 20021111
  Transmission Date: 20050727
  Serious: Yes (Death)
  Sender: FDA-Public Use
  Company Number: 2002133102US

PATIENT
  Age: 23 Year

DRUGS (2)
  1. DIPHENHYDRAMINE (DIPHENHYDRAMINE) [Suspect]
     Dosage: ORAL
     Route: 048
  2. TRICYCLIC ANTIDEPRESSANTS (TRICYCLIC ANTIDEPRESSANTS) [Suspect]

REACTIONS (2)
  - COMPLETED SUICIDE [None]
  - INTENTIONAL MISUSE [None]
